FAERS Safety Report 8359148 (Version 2)
Quarter: 2013Q1

REPORT INFORMATION
  Report Type: Spontaneous
  Country: US (occurrence: US)
  Receive Date: 20120127
  Receipt Date: 20130125
  Transmission Date: 20140127
  Serious: Yes (Other)
  Sender: FDA-Public Use
  Company Number: US-ELI_LILLY_AND_COMPANY-US201201006622

PATIENT
  Sex: Male

DRUGS (12)
  1. BYETTA [Suspect]
     Indication: TYPE 2 DIABETES MELLITUS
     Dosage: 5 UG, BID
     Route: 058
     Dates: start: 20090504, end: 20100811
  2. LANTUS [Concomitant]
     Dosage: 100 U, EACH MORNING
  3. HUMULIN R [Concomitant]
  4. GLIPIZIDE XL [Concomitant]
     Dosage: 10 MG, QD
  5. GABAPENTIN [Concomitant]
     Dosage: 300 MG, BID
  6. METOPROLOL [Concomitant]
     Dosage: 100 MG, BID
  7. METFORMIN [Concomitant]
     Dosage: 1000 MG, QD
  8. COLCHICINE [Concomitant]
     Dosage: 0.6 MG, QD
  9. MICARDIS [Concomitant]
     Dosage: UNK, QD
  10. ADALAT [Concomitant]
     Dosage: 60 MG, QD
  11. ATORVASTATIN CALCIUM [Concomitant]
     Dosage: 10 MG, QD
  12. METANX [Concomitant]
     Dosage: UNK, QD

REACTIONS (1)
  - Pancreatic carcinoma [Unknown]
